FAERS Safety Report 5976812-X (Version None)
Quarter: 2008Q4

REPORT INFORMATION
  Report Type: 
  Country: None (occurrence: None)
  Receive Date: 20081203
  Receipt Date: 20081124
  Transmission Date: 20090506
  Serious: Yes (Other)
  Sender: FDA-Public Use
  Company Number: BE-AMGEN-UK320633

PATIENT
  Sex: Female

DRUGS (1)
  1. MIMPARA [Suspect]
     Indication: DRUG USE FOR UNKNOWN INDICATION
     Route: 065

REACTIONS (4)
  - CALCIUM IONISED DECREASED [None]
  - CARDIAC ARREST [None]
  - CONVULSION [None]
  - ELECTROCARDIOGRAM QT PROLONGED [None]
